FAERS Safety Report 4398213-0 (Version None)
Quarter: 2004Q3

REPORT INFORMATION
  Report Type: 
  Country: None (occurrence: None)
  Receive Date: 20040713
  Receipt Date: 20040630
  Transmission Date: 20050211
  Serious: Yes (Death)
  Sender: FDA-Public Use
  Company Number: JP-JNJFOC-20040400846

PATIENT
  Age: 61 Year
  Sex: Male

DRUGS (6)
  1. FENTANYL [Suspect]
     Indication: CANCER PAIN
     Dosage: 25 UG/HR, 1 IN 72 HOUR, TRANSDERMAL
     Route: 062
     Dates: start: 20030821, end: 20030916
  2. PREDISONE (PREDNISONDE) [Concomitant]
  3. DICLOFENAC SODIUM [Concomitant]
  4. MORPHINE [Concomitant]
  5. FUROSEMIDE [Concomitant]
  6. POTASSIUM CANRENOATE (POTASSIUM CANRENOATE) [Concomitant]

REACTIONS (2)
  - GASTRIC CANCER [None]
  - MALIGNANT NEOPLASM PROGRESSION [None]
